FAERS Safety Report 10186134 (Version 1)
Quarter: 2014Q2

REPORT INFORMATION
  Report Type: Spontaneous
  Country: US (occurrence: US)
  Receive Date: 20140521
  Receipt Date: 20140521
  Transmission Date: 20141212
  Serious: Yes (Other)
  Sender: FDA-Public Use
  Company Number: US-PFIZER INC-2014138032

PATIENT
  Age: 75 Year
  Sex: Female
  Weight: 58.96 kg

DRUGS (1)
  1. LYRICA [Suspect]
     Indication: NEURALGIA
     Dosage: 100 MG, 1X/DAY (ONE CAPSULE OF 25MG AND ONE CAPSULE OF 75MG TOGETHER)
     Route: 048
     Dates: start: 2009

REACTIONS (2)
  - Atrial fibrillation [Unknown]
  - Hypertension [Unknown]
